FAERS Safety Report 7651524-5 (Version None)
Quarter: 2011Q3

REPORT INFORMATION
  Report Type: 
  Country: None (occurrence: None)
  Receive Date: 20110802
  Receipt Date: 20110728
  Transmission Date: 20111222
  Serious: Yes (Death, Hospitalization)
  Sender: FDA-Public Use
  Company Number: PHHY2011NL19561

PATIENT
  Sex: Female
  Weight: 66 kg

DRUGS (3)
  1. ZOMETA [Suspect]
     Indication: BREAST CANCER METASTATIC
     Dosage: 4 MG/5 ML 1X PER 28 DAYS
     Dates: start: 20100527
  2. ZOMETA [Suspect]
     Dosage: UNK UKN, UNK
     Dates: start: 20110209
  3. ZOMETA [Suspect]
     Dosage: UNK UKN, UNK
     Dates: start: 20110112

REACTIONS (7)
  - METASTASES TO BONE [None]
  - PULMONARY OEDEMA [None]
  - NEOPLASM PROGRESSION [None]
  - NEOPLASM MALIGNANT [None]
  - RESPIRATORY TRACT INFECTION [None]
  - DYSPNOEA [None]
  - URINARY TRACT INFECTION [None]
